FAERS Safety Report 8460485-0 (Version None)
Quarter: 2012Q2

REPORT INFORMATION
  Report Type: 
  Country: None (occurrence: None)
  Receive Date: 20120622
  Receipt Date: 20120612
  Transmission Date: 20120825
  Serious: Yes (Hospitalization, Other)
  Sender: FDA-Public Use
  Company Number: CA-ABBOTT-12P-028-0936743-00

PATIENT
  Age: 77 Year
  Sex: Female
  Weight: 65 kg

DRUGS (21)
  1. PREDNISONE TAB [Concomitant]
     Route: 048
     Dates: start: 20120326, end: 20120423
  2. CLONAZEPAM [Concomitant]
     Indication: INSOMNIA
     Route: 048
     Dates: start: 20111213
  3. CRESTOR [Concomitant]
     Indication: CARDIOVASCULAR EVENT PROPHYLAXIS
  4. PREDNISONE TAB [Concomitant]
     Route: 048
     Dates: start: 20120125, end: 20120225
  5. ACETAMINOPHEN [Concomitant]
     Indication: HEADACHE
     Dates: start: 20120316
  6. HUMIRA [Suspect]
     Indication: UVEITIS
     Route: 058
     Dates: start: 20110927, end: 20120409
  7. PREDNISONE TAB [Concomitant]
     Dosage: 5MG QEOD ALTERNATING WITH 7.5MG
     Route: 048
     Dates: start: 20120226, end: 20120325
  8. SYNTHROID [Concomitant]
     Indication: HYPOTHYROIDISM
     Dates: start: 20030101
  9. ROGAINE [Concomitant]
     Route: 061
     Dates: start: 20120126, end: 20120424
  10. CALTRATE WITH VITAMIN D [Concomitant]
     Indication: OSTEOPOROSIS PROPHYLAXIS
     Route: 048
     Dates: start: 20110429, end: 20120511
  11. ROGAINE [Concomitant]
     Route: 061
     Dates: start: 20120425, end: 20120510
  12. PREDNISONE TAB [Concomitant]
     Route: 048
     Dates: start: 20111011, end: 20111025
  13. PREDNISONE TAB [Concomitant]
     Indication: PRODUCT USED FOR UNKNOWN INDICATION
     Route: 048
     Dates: start: 20110920, end: 20111010
  14. PREDNISONE TAB [Concomitant]
     Route: 048
     Dates: start: 20111026, end: 20111108
  15. CRESTOR [Concomitant]
     Indication: LIPIDS INCREASED
     Route: 048
     Dates: start: 20111214
  16. PREDNISONE TAB [Concomitant]
     Route: 048
     Dates: start: 20111109, end: 20111122
  17. PREDNISONE TAB [Concomitant]
     Route: 048
     Dates: start: 20111123, end: 20111213
  18. PREDNISONE TAB [Concomitant]
     Dosage: EOD ALTERNATING WITH 10MG
     Route: 048
     Dates: start: 20111214, end: 20120124
  19. ROGAINE [Concomitant]
     Indication: HAIR GROWTH ABNORMAL
     Route: 062
     Dates: start: 20111025, end: 20120116
  20. ACETAMINOPHEN [Concomitant]
     Indication: ARTHRALGIA
     Route: 048
     Dates: start: 20120329
  21. RISEDRONATE SODIUM [Concomitant]
     Indication: OSTEOPOROSIS PROPHYLAXIS
     Dosage: EVERY WEDNESDAY
     Route: 048
     Dates: start: 20120301

REACTIONS (1)
  - ATAXIA [None]
